FAERS Safety Report 15301907 (Version 1)
Quarter: 2018Q3

REPORT INFORMATION
  Report Type: Spontaneous
  Country: DE (occurrence: DE)
  Receive Date: 20180821
  Receipt Date: 20180821
  Transmission Date: 20181010
  Serious: Yes (Other)
  Sender: FDA-Public Use
  Company Number: DE-TEVA-2018-DE-944668

PATIENT
  Age: 30 Year
  Sex: Male

DRUGS (14)
  1. OLANZAPIN [Suspect]
     Active Substance: OLANZAPINE
     Dosage: 12.5 MILLIGRAM DAILY;
     Route: 048
     Dates: start: 20171224, end: 20171226
  2. AMISULPRID [Suspect]
     Active Substance: AMISULPRIDE
     Dosage: 400 MILLIGRAM DAILY;
     Route: 048
     Dates: start: 20180112, end: 20180116
  3. OLANZAPIN [Suspect]
     Active Substance: OLANZAPINE
     Route: 065
     Dates: start: 20171212, end: 20171223
  4. OLANZAPIN [Suspect]
     Active Substance: OLANZAPINE
     Dosage: 10 MILLIGRAM DAILY;
     Route: 048
     Dates: start: 20171227, end: 20171230
  5. OLANZAPIN [Suspect]
     Active Substance: OLANZAPINE
     Dosage: 7.5 MILLIGRAM/MILLILITERS DAILY;
     Route: 048
     Dates: start: 20171231, end: 20180102
  6. AMISULPRID [Suspect]
     Active Substance: AMISULPRIDE
     Dosage: 200 MILLIGRAM DAILY;
     Route: 048
     Dates: start: 20180119
  7. AMISULPRID [Suspect]
     Active Substance: AMISULPRIDE
     Dates: start: 20180117, end: 20180118
  8. AMISULPRID [Suspect]
     Active Substance: AMISULPRIDE
     Dosage: 1000 MILLIGRAM DAILY;
     Route: 048
     Dates: start: 20171216, end: 20180103
  9. AMISULPRID [Suspect]
     Active Substance: AMISULPRIDE
     Dosage: 900 MILLIGRAM DAILY;
     Route: 048
     Dates: start: 20171210, end: 20171215
  10. AMISULPRID [Suspect]
     Active Substance: AMISULPRIDE
     Route: 048
     Dates: start: 20171101, end: 20171209
  11. OLANZAPIN [Suspect]
     Active Substance: OLANZAPINE
     Dosage: 10 MILLIGRAM DAILY;
     Route: 048
     Dates: start: 20171211
  12. AMISULPRID [Suspect]
     Active Substance: AMISULPRIDE
     Dosage: 600 MILLIGRAM DAILY;
     Route: 048
     Dates: start: 20180111
  13. AMISULPRID [Suspect]
     Active Substance: AMISULPRIDE
     Dosage: 800 MILLIGRAM DAILY;
     Route: 048
     Dates: start: 20180104, end: 20180110
  14. OLANZAPIN [Suspect]
     Active Substance: OLANZAPINE
     Dosage: 5 MILLIGRAM DAILY;
     Route: 048
     Dates: start: 20180103

REACTIONS (3)
  - Breast pain [Recovered/Resolved]
  - Galactorrhoea [Recovered/Resolved]
  - Breast engorgement [Recovered/Resolved]

NARRATIVE: CASE EVENT DATE: 20180103
